FAERS Safety Report 12602845 (Version 1)
Quarter: 2016Q3

REPORT INFORMATION
  Report Type: Report from Study
  Country: BR (occurrence: BR)
  Receive Date: 20160728
  Receipt Date: 20160728
  Transmission Date: 20161109
  Serious: Yes (Life-Threatening, Other)
  Sender: FDA-Public Use
  Company Number: PHHY2016BR099115

PATIENT
  Sex: Female
  Weight: 62 kg

DRUGS (2)
  1. EXELON [Concomitant]
     Active Substance: RIVASTIGMINE TARTRATE
     Indication: DEMENTIA ALZHEIMER^S TYPE
     Dosage: 13.5 MG, UNK
     Route: 062
     Dates: end: 201603
  2. DONEPEZIL HYDROCHLORIDE SANDOZ [Suspect]
     Active Substance: DONEPEZIL HYDROCHLORIDE
     Indication: DEMENTIA ALZHEIMER^S TYPE
     Dosage: 10 MG, QD
     Route: 048
     Dates: start: 20160520, end: 20160520

REACTIONS (2)
  - Vomiting [Unknown]
  - Dysentery [Unknown]
